FAERS Safety Report 5169194-7 (Version None)
Quarter: 2006Q4

REPORT INFORMATION
  Report Type: 
  Country: None (occurrence: None)
  Receive Date: 20061211
  Receipt Date: 20061202
  Transmission Date: 20070319
  Serious: Yes (Death)
  Sender: FDA-Public Use
  Company Number: PHRM2006FR03226

PATIENT
  Age: 81 Year
  Sex: Female

DRUGS (4)
  1. MEMANTINE HCL [Suspect]
     Dosage: UNK, UNK
     Route: 048
     Dates: start: 20050101
  2. INFLUENZA VACCINE [Suspect]
     Dosage: UNK, ONCE/SINGLE
     Route: 058
  3. EXELON [Suspect]
     Indication: DEMENTIA ALZHEIMER'S TYPE
     Dosage: UNK, UNK
     Route: 048
     Dates: start: 20030101
  4. CORVASAL [Concomitant]
     Indication: ARTERITIS CORONARY
     Route: 048

REACTIONS (1)
  - SYNCOPE [None]
